FAERS Safety Report 11673235 (Version 1)
Quarter: 2015Q4

REPORT INFORMATION
  Report Type: Spontaneous
  Country: US (occurrence: US)
  Receive Date: 20151027
  Receipt Date: 20151027
  Transmission Date: 20160304
  Serious: No
  Sender: FDA-Public Use
  Company Number: US-ELI_LILLY_AND_COMPANY-US201003001300

PATIENT
  Sex: Female

DRUGS (1)
  1. FORTEO [Suspect]
     Active Substance: TERIPARATIDE
     Indication: OSTEOPOROSIS
     Dosage: 20 UG, DAILY (1/D)
     Route: 065
     Dates: start: 20100122, end: 20100224

REACTIONS (6)
  - Visual acuity reduced [Not Recovered/Not Resolved]
  - Sneezing [Unknown]
  - Lacrimation increased [Unknown]
  - Throat irritation [Unknown]
  - Rhinorrhoea [Unknown]
  - Cough [Recovered/Resolved]
